FAERS Safety Report 16773037 (Version 2)
Quarter: 2019Q4

REPORT INFORMATION
  Report Type: Report from Study
  Country: US (occurrence: US)
  Receive Date: 20190904
  Receipt Date: 20191104
  Transmission Date: 20200122
  Serious: Yes (Other)
  Sender: FDA-Public Use
  Company Number: US-UCBSA-2019036356

PATIENT
  Age: 3 Year
  Sex: Female
  Weight: 2.3 kg

DRUGS (9)
  1. VENOFER [Concomitant]
     Active Substance: IRON SUCROSE
     Indication: ANAEMIA
     Dosage: UNK UNK, TOTAL
     Route: 064
     Dates: start: 20121101, end: 20121130
  2. ZOFRAN [Concomitant]
     Active Substance: ONDANSETRON HYDROCHLORIDE
     Indication: NAUSEA
     Dosage: 2 DOSAGE FORM, ONCE DAILY (QD)
     Route: 064
     Dates: start: 20130101, end: 20130228
  3. PREDNISONE. [Concomitant]
     Active Substance: PREDNISONE
     Indication: CROHN^S DISEASE
     Dosage: UNK
     Dates: start: 20130116
  4. VENOFER [Concomitant]
     Active Substance: IRON SUCROSE
     Dosage: 3.5 UNK
     Route: 064
     Dates: start: 20130301, end: 20130331
  5. MESALAMINE. [Concomitant]
     Active Substance: MESALAMINE
     Indication: CROHN^S DISEASE
     Dosage: 2 PILLS 2 TOTAL
     Route: 064
     Dates: start: 20130101, end: 20130131
  6. FOLIC ACID. [Concomitant]
     Active Substance: FOLIC ACID
     Indication: PRODUCT USED FOR UNKNOWN INDICATION
     Dosage: 400 MILLIGRAM, ONCE DAILY (QD)
     Route: 064
     Dates: start: 20121017, end: 20130726
  7. CITALOPRAM HYDROBROMIDE. [Concomitant]
     Active Substance: CITALOPRAM HYDROBROMIDE
     Indication: DEPRESSION
     Dosage: 20 MILLIGRAM, ONCE DAILY (QD)
     Route: 064
     Dates: start: 20121017, end: 20130726
  8. CERTOLIZUMAB PEGOL RA [Suspect]
     Active Substance: CERTOLIZUMAB PEGOL
     Indication: CROHN^S DISEASE
     Dosage: 200 MILLIGRAM, 2X/MONTH
     Route: 064
     Dates: start: 20121031, end: 20130115
  9. TYLENOL [Concomitant]
     Active Substance: ACETAMINOPHEN
     Indication: HEADACHE
     Dosage: 1000 MILLIGRAM, 4.5 TOTAL
     Route: 064
     Dates: start: 20121017, end: 20130726

REACTIONS (5)
  - Maternal exposure before pregnancy [Unknown]
  - Staphylococcal infection [Unknown]
  - Cellulitis [Unknown]
  - Foetal growth restriction [Unknown]
  - Low birth weight baby [Unknown]

NARRATIVE: CASE EVENT DATE: 20121031
